FAERS Safety Report 4707897-6 (Version None)
Quarter: 2005Q3

REPORT INFORMATION
  Report Type: 
  Country: None (occurrence: None)
  Receive Date: 20050707
  Receipt Date: 20041103
  Transmission Date: 20060218
  Serious: No
  Sender: FDA-Public Use
  Company Number: US-BRISTOL-MYERS SQUIBB COMPANY-12767190

PATIENT
  Sex: Female

DRUGS (1)
  1. SINEMET CR [Suspect]
     Dosage: DOSE:  100/400 MG

REACTIONS (2)
  - DRUG INEFFECTIVE [None]
  - NAUSEA [None]
